FAERS Safety Report 8548968 (Version 4)
Quarter: 2013Q1

REPORT INFORMATION
  Report Type: Spontaneous
  Country: BR (occurrence: BR)
  Receive Date: 20120507
  Receipt Date: 20130204
  Transmission Date: 20140127
  Serious: Yes (Hospitalization)
  Sender: FDA-Public Use
  Company Number: BR-ASTRAZENECA-2012SE28066

PATIENT
  Age: 61 Year
  Sex: Male
  Weight: 31.8 kg

DRUGS (17)
  1. CRESTOR [Suspect]
     Indication: BLOOD CHOLESTEROL INCREASED
     Route: 048
     Dates: start: 2007, end: 2007
  2. CRESTOR [Suspect]
     Indication: BLOOD CHOLESTEROL INCREASED
     Route: 048
     Dates: start: 2007, end: 2010
  3. CRESTOR [Suspect]
     Indication: BLOOD CHOLESTEROL INCREASED
     Route: 048
     Dates: start: 2010, end: 201204
  4. CRESTOR [Suspect]
     Indication: BLOOD CHOLESTEROL INCREASED
     Route: 048
     Dates: start: 2009
  5. CRESTOR [Suspect]
     Indication: BLOOD CHOLESTEROL INCREASED
     Route: 048
     Dates: start: 201204
  6. EZETIMIBE [Suspect]
     Indication: DYSLIPIDAEMIA
     Route: 048
  7. VASTAREL [Concomitant]
     Route: 048
     Dates: start: 2007
  8. PROCOLARAN [Concomitant]
     Route: 048
     Dates: start: 2007
  9. LIPILESS [Concomitant]
     Route: 048
  10. ASA [Concomitant]
     Route: 048
  11. RANITIDINE [Concomitant]
     Indication: GASTRITIS PROPHYLAXIS
     Route: 048
     Dates: start: 2007
  12. NEBILET [Concomitant]
     Route: 048
  13. ALPRAZOLAM [Concomitant]
     Route: 048
     Dates: start: 2007
  14. CITALOPRAM [Concomitant]
     Route: 048
     Dates: start: 2007
  15. SUBSTRATE [Concomitant]
     Route: 048
     Dates: start: 2007
  16. FINASTERIDA [Concomitant]
     Route: 048
     Dates: start: 2007
  17. MONOCORDIL [Concomitant]
     Route: 048
     Dates: start: 2007

REACTIONS (7)
  - Myocardial infarction [Recovered/Resolved]
  - Arterial occlusive disease [Recovered/Resolved]
  - Coronary artery occlusion [Recovered/Resolved]
  - Dyslipidaemia [Unknown]
  - Blood cholesterol increased [Recovered/Resolved]
  - Intentional drug misuse [Not Recovered/Not Resolved]
  - Drug ineffective [Unknown]
